FAERS Safety Report 8814803 (Version 1)
Quarter: 2012Q4

REPORT INFORMATION
  Report Type: 
  Country: US (occurrence: US)
  Receive Date: 20120928
  Receipt Date: 20120928
  Transmission Date: 20130627
  Serious: No
  Sender: FDA-Public Use
  Company Number: US-PFIZER INC-2012240217

PATIENT
  Sex: Female
  Weight: 70.3 kg

DRUGS (2)
  1. RELPAX [Suspect]
     Indication: MIGRAINE
     Dosage: 40 mg, as needed
     Dates: end: 2012
  2. INDERAL [Concomitant]
     Indication: HEART RATE IRREGULAR
     Dosage: 60 mg, daily

REACTIONS (2)
  - Fatigue [Recovered/Resolved]
  - Drug dispensing error [Recovered/Resolved]
